FAERS Safety Report 7602493 (Version 4)
Quarter: 2013Q3

REPORT INFORMATION
  Report Type: Spontaneous
  Country: JP (occurrence: JP)
  Receive Date: 20100923
  Receipt Date: 20130710
  Transmission Date: 20140515
  Serious: Yes (Other)
  Sender: FDA-Public Use
  Company Number: PHHY2010JP61430

PATIENT
  Age: 15 Month
  Sex: Male

DRUGS (3)
  1. CICLOSPORIN [Suspect]
     Indication: NEPHROTIC SYNDROME
  2. METHYLPREDNISOLONE [Concomitant]
     Indication: NEPHROTIC SYNDROME
  3. PREDONINE [Concomitant]

REACTIONS (8)
  - Focal segmental glomerulosclerosis [Unknown]
  - Renal failure acute [Recovered/Resolved]
  - Renal impairment [Recovered/Resolved]
  - Renal tubular atrophy [Unknown]
  - Nephropathy toxic [Unknown]
  - Immunosuppressant drug level increased [Unknown]
  - Toxicity to various agents [Unknown]
  - Anuria [Unknown]
